FAERS Safety Report 22628890 (Version 1)
Quarter: 2023Q2

REPORT INFORMATION
  Report Type: Report from Study
  Country: US (occurrence: None)
  Receive Date: 20230622
  Receipt Date: 20230622
  Transmission Date: 20230722
  Serious: Yes (Other)
  Sender: FDA-Public Use
  Company Number: US-ROCHE-3265927

PATIENT
  Age: 71 Year
  Sex: Female
  Weight: 92 kg

DRUGS (12)
  1. RANIBIZUMAB [Suspect]
     Active Substance: RANIBIZUMAB
     Indication: Diabetic retinal oedema
     Dosage: DOSE OF STUDY DRUG FIRST ADMINISTERED 10 MG/ML, FREQUENCY OF THE IMPLANT: EVERY 24 WEEKS?DOSE LAST S
     Route: 050
     Dates: start: 20200716
  2. RANIBIZUMAB [Suspect]
     Active Substance: RANIBIZUMAB
  3. RANIBIZUMAB [Suspect]
     Active Substance: RANIBIZUMAB
  4. RANIBIZUMAB [Suspect]
     Active Substance: RANIBIZUMAB
  5. RANIBIZUMAB [Suspect]
     Active Substance: RANIBIZUMAB
  6. RANIBIZUMAB [Concomitant]
     Active Substance: RANIBIZUMAB
     Dosage: DOSE OF STUDY DRUG FIRST ADMINISTERED, LAST STUDY DRUG ADMIN PRIOR AE 6 MG/ML?START DATE OF MOST REC
     Route: 050
     Dates: start: 20200813
  7. METFORMIN [Concomitant]
     Active Substance: METFORMIN HYDROCHLORIDE
     Indication: Type 2 diabetes mellitus
     Route: 048
     Dates: start: 20200323
  8. METFORMIN [Concomitant]
     Active Substance: METFORMIN HYDROCHLORIDE
     Dosage: 750 MG/ML
     Route: 048
     Dates: start: 20210414
  9. BESIVANCE [Concomitant]
     Active Substance: BESIFLOXACIN
     Route: 047
     Dates: start: 20220907
  10. AMOXICILLIN [Concomitant]
     Active Substance: AMOXICILLIN
     Indication: Sinusitis
     Dosage: 1500 MG/ML
     Route: 048
     Dates: start: 202302, end: 202303
  11. ACETAMINOPHEN [Concomitant]
     Active Substance: ACETAMINOPHEN
     Indication: Pain
     Dosage: 325 MG/ML
     Route: 048
  12. IBUPROFEN [Concomitant]
     Active Substance: IBUPROFEN
     Dosage: 200 MG/ML
     Route: 048

REACTIONS (2)
  - Device issue [Unknown]
  - No adverse event [Unknown]

NARRATIVE: CASE EVENT DATE: 20230105
